FAERS Safety Report 9465790 (Version 2)
Quarter: 2014Q1

REPORT INFORMATION
  Report Type: Spontaneous
  Country: US (occurrence: US)
  Receive Date: 20130820
  Receipt Date: 20140314
  Transmission Date: 20141002
  Serious: No
  Sender: FDA-Public Use
  Company Number: US-PFIZER INC-2013239173

PATIENT
  Age: 42 Year
  Sex: Female
  Weight: 62.59 kg

DRUGS (6)
  1. LYRICA [Suspect]
     Indication: FIBROMYALGIA
     Dosage: UNK
     Dates: start: 201009, end: 201309
  2. LYRICA [Suspect]
     Indication: ARTHRALGIA
     Dosage: 75 MG, 2X/DAY
     Dates: start: 201402
  3. LYRICA [Suspect]
     Indication: NEURALGIA
  4. LYRICA [Suspect]
     Indication: OSTEOARTHRITIS
  5. LYRICA [Suspect]
     Indication: RHEUMATOID ARTHRITIS
  6. KLONOPIN [Concomitant]
     Indication: ANXIETY
     Dosage: UNK

REACTIONS (2)
  - Malaise [Unknown]
  - Drug intolerance [Unknown]
